FAERS Safety Report 11466804 (Version 2)
Quarter: 2015Q3

REPORT INFORMATION
  Report Type: Report from Study
  Country: BR (occurrence: BR)
  Receive Date: 20150907
  Receipt Date: 20150909
  Transmission Date: 20151125
  Serious: Yes (Hospitalization, Other)
  Sender: FDA-Public Use
  Company Number: BR-BRISTOL-MYERS SQUIBB COMPANY-BMS-2015-058726

PATIENT
  Sex: Female

DRUGS (2)
  1. RIVOTRIL [Concomitant]
     Active Substance: CLONAZEPAM
     Indication: PRODUCT USED FOR UNKNOWN INDICATION
     Route: 065
  2. ABATACEPT [Suspect]
     Active Substance: ABATACEPT
     Indication: RHEUMATOID ARTHRITIS
     Dosage: 650 MG, QMO
     Route: 042
     Dates: start: 20141003

REACTIONS (4)
  - Viral infection [Recovered/Resolved]
  - Brain tumour operation [Recovered/Resolved]
  - Arthralgia [Recovered/Resolved]
  - Brain neoplasm [Recovered/Resolved]
